FAERS Safety Report 21233723 (Version 1)
Quarter: 2022Q3

REPORT INFORMATION
  Report Type: Spontaneous
  Country: US (occurrence: US)
  Receive Date: 20220819
  Receipt Date: 20220819
  Transmission Date: 20221027
  Serious: No
  Sender: FDA-Public Use
  Company Number: US-GLENMARK PHARMACEUTICALS-2022GMK071513

PATIENT

DRUGS (3)
  1. ADAPALENE [Suspect]
     Active Substance: ADAPALENE
     Indication: Acne
     Dosage: UNK, OD
     Route: 061
     Dates: start: 20220318, end: 20220322
  2. ADAPALENE [Suspect]
     Active Substance: ADAPALENE
     Indication: Seborrhoea
  3. ADAPALENE [Suspect]
     Active Substance: ADAPALENE
     Indication: Seborrhoea

REACTIONS (2)
  - Rash erythematous [Not Recovered/Not Resolved]
  - Skin irritation [Not Recovered/Not Resolved]

NARRATIVE: CASE EVENT DATE: 20220321
